FAERS Safety Report 8901573 (Version 1)
Quarter: 2012Q4

REPORT INFORMATION
  Report Type: Spontaneous
  Country: US (occurrence: None)
  Receive Date: 20121108
  Receipt Date: 20121108
  Transmission Date: 20130627
  Serious: No
  Sender: FDA-Public Use
  Company Number: None

PATIENT
  Age: 64 Year
  Sex: Female
  Weight: 53.52 kg

DRUGS (1)
  1. RECLAST [Suspect]
     Indication: OSTEOPOROSIS
     Dosage: 5mg/100ml
     Route: 041
     Dates: start: 20120614, end: 20120614

REACTIONS (3)
  - Influenza like illness [None]
  - Nausea [None]
  - Infusion related reaction [None]
